FAERS Safety Report 12163439 (Version 1)
Quarter: 2016Q1

REPORT INFORMATION
  Report Type: Spontaneous
  Country: US (occurrence: US)
  Receive Date: 20160309
  Receipt Date: 20160309
  Transmission Date: 20160526
  Serious: No
  Sender: FDA-Public Use
  Company Number: US-ROCHE-1595468

PATIENT
  Sex: Female
  Weight: 66.74 kg

DRUGS (1)
  1. XOLAIR [Suspect]
     Active Substance: OMALIZUMAB
     Indication: ASTHMA
     Dosage: FORM STRENGTH: 150 MG/12 ML
     Route: 058
     Dates: start: 200604

REACTIONS (1)
  - Hypokinesia [Unknown]
